FAERS Safety Report 6469228-3 (Version None)
Quarter: 2009Q4

REPORT INFORMATION
  Report Type: 
  Country: None (occurrence: None)
  Receive Date: 20091203
  Receipt Date: 20080312
  Transmission Date: 20100525
  Serious: Yes (Death)
  Sender: FDA-Public Use
  Company Number: JP-ELI_LILLY_AND_COMPANY-JP200702004751

PATIENT
  Sex: Male
  Weight: 45 kg

DRUGS (7)
  1. GEMZAR [Suspect]
     Indication: PANCREATIC CARCINOMA STAGE II
     Dosage: 1490 MG, OTHER
     Route: 042
     Dates: start: 20070131, end: 20070214
  2. KYTRIL [Concomitant]
     Indication: PROPHYLAXIS OF NAUSEA AND VOMITING
     Dosage: 3 MG, OTHER
     Route: 042
     Dates: start: 20070131, end: 20070214
  3. URSOSAN [Concomitant]
     Dosage: 50 MG, 3/D
     Route: 048
     Dates: start: 20061201
  4. LOXONIN [Concomitant]
     Indication: PAIN
     Dosage: 60 MG, 2/D
     Route: 048
     Dates: start: 20061201
  5. ZANTAC [Concomitant]
     Indication: PROPHYLAXIS
     Dosage: 150 MG, 2/D
     Route: 048
     Dates: start: 20061201
  6. ZANTAC [Concomitant]
     Dosage: 150 MG, DAILY (1/D)
     Route: 048
  7. ULCERMIN [Concomitant]
     Indication: PROPHYLAXIS
     Dosage: 1 G, 3/D
     Route: 048
     Dates: start: 20061201

REACTIONS (2)
  - DIARRHOEA [None]
  - PERITONITIS [None]
